FAERS Safety Report 8185905-0 (Version None)
Quarter: 2012Q1

REPORT INFORMATION
  Report Type: 
  Country: None (occurrence: None)
  Receive Date: 20120305
  Receipt Date: 20120223
  Transmission Date: 20120608
  Serious: Yes (Other)
  Sender: FDA-Public Use
  Company Number: US-ASTRAZENECA-2012SE12757

PATIENT
  Age: 81 Year

DRUGS (2)
  1. FELODIPINE [Suspect]
     Route: 048
     Dates: start: 20110901
  2. METOPROLOL TARTRATE [Suspect]
     Route: 048

REACTIONS (5)
  - ASTHENIA [None]
  - LYMPHADENOPATHY [None]
  - CHRONIC LYMPHOCYTIC LEUKAEMIA [None]
  - GAIT DISTURBANCE [None]
  - JOINT SWELLING [None]
